FAERS Safety Report 5834246-2 (Version None)
Quarter: 2008Q3

REPORT INFORMATION
  Report Type: 
  Country: None (occurrence: None)
  Receive Date: 20080805
  Receipt Date: 20080725
  Transmission Date: 20090109
  Serious: Yes (Hospitalization)
  Sender: FDA-Public Use
  Company Number: PHHY2008NO15329

PATIENT
  Sex: Female

DRUGS (12)
  1. VOLTAREN [Suspect]
     Indication: PROCEDURAL PAIN
     Dosage: (50 MG X 3) FOR 3 WEEKS
  2. MAREVAN [Suspect]
     Indication: ATRIAL FIBRILLATION
     Route: 048
  3. MAREVAN [Suspect]
     Route: 048
  4. FOSAMAX [Concomitant]
     Indication: OSTEOPOROSIS
     Dosage: 70 MG WEEKLY
     Route: 048
     Dates: end: 20080601
  5. PREDNISOLONE [Concomitant]
     Indication: RHEUMATOID ARTHRITIS
     Dosage: 7.5 MG DAILY
  6. KALEORID [Concomitant]
     Dosage: 750 MG X 2
     Route: 048
  7. CALCIGRAN [Concomitant]
     Dosage: 1 DF, BID
  8. BURINEX [Concomitant]
     Route: 048
  9. BURINEX [Concomitant]
     Route: 042
  10. LEVOTHYROXINE SODIUM [Concomitant]
     Dosage: 100 UG DAILY
     Route: 048
  11. TIMOSAN [Concomitant]
     Dosage: 1 GTT IN EACH EYE IN THE EVENING
  12. RANITIDINE HCL [Concomitant]
     Dosage: 150 MG/DAY

REACTIONS (9)
  - ANAEMIA [None]
  - C-REACTIVE PROTEIN INCREASED [None]
  - GASTRIC ULCER [None]
  - HAEMATOCHEZIA [None]
  - INTERNATIONAL NORMALISED RATIO INCREASED [None]
  - LOWER RESPIRATORY TRACT INFECTION [None]
  - OEDEMA [None]
  - OESOPHAGITIS [None]
  - PYREXIA [None]
